FAERS Safety Report 6013708-1 (Version None)
Quarter: 2008Q4

REPORT INFORMATION
  Report Type: 
  Country: None (occurrence: None)
  Receive Date: 20081219
  Receipt Date: 20081215
  Transmission Date: 20090506
  Serious: Yes (Death)
  Sender: FDA-Public Use
  Company Number: A0760419A

PATIENT
  Age: 60 Year
  Sex: Male
  Weight: 83 kg

DRUGS (14)
  1. ALKERAN [Suspect]
     Dosage: 50MG PER DAY
     Route: 058
  2. VALACYCLOVIR HCL [Concomitant]
     Dosage: 500MG PER DAY
     Dates: start: 20081025
  3. BACTRIM [Concomitant]
     Dosage: 1TAB PER DAY
     Dates: start: 20081025
  4. OMEPRAZOLE [Concomitant]
     Dosage: 40MG TWICE PER DAY
     Dates: start: 20081025
  5. CARBAMAZEPINE [Concomitant]
     Dosage: 200MG TWICE PER DAY
     Dates: start: 20081025
  6. MORPHINE [Concomitant]
     Dosage: 10MG TWICE PER DAY
     Dates: start: 20081025
  7. ENALAPRIL MALEATE [Concomitant]
     Dosage: 5MG PER DAY
     Dates: start: 20081025
  8. CLORANA [Concomitant]
     Dosage: 12.5MG PER DAY
     Dates: start: 20081025
  9. DIGESAN [Concomitant]
     Dosage: 10MG THREE TIMES PER DAY
     Dates: start: 20081025
  10. TIABENDAZOLE [Concomitant]
     Dates: start: 20081025
  11. PLASIL [Concomitant]
     Dosage: 2ML FOUR TIMES PER DAY
     Dates: start: 20081025
  12. ZOFRAN [Concomitant]
     Dosage: 8MG TWICE PER DAY
     Dates: start: 20081025
  13. CHLORPROMAZINE [Concomitant]
     Dosage: 4DROP FOUR TIMES PER DAY
     Dates: start: 20081025
  14. DECADRON [Concomitant]
     Dosage: 20MG PER DAY
     Dates: start: 20081025

REACTIONS (5)
  - ABDOMINAL PAIN [None]
  - DEATH [None]
  - HYPOTENSION [None]
  - SHOCK [None]
  - VOMITING [None]
